FAERS Safety Report 14492122 (Version 1)
Quarter: 2018Q1

REPORT INFORMATION
  Report Type: Spontaneous
  Country: FR (occurrence: FR)
  Receive Date: 20180206
  Receipt Date: 20180206
  Transmission Date: 20180509
  Serious: Yes (Death, Hospitalization)
  Sender: FDA-Public Use
  Company Number: FR-SA-2018SA025751

PATIENT
  Age: 19 Year
  Sex: Female

DRUGS (11)
  1. STILNOX [Suspect]
     Active Substance: ZOLPIDEM TARTRATE
     Indication: PSYCHIATRIC DECOMPENSATION
     Route: 048
     Dates: start: 20171219, end: 20171227
  2. FLUANXOL [Suspect]
     Active Substance: FLUPENTIXOL
     Indication: PSYCHIATRIC DECOMPENSATION
     Route: 048
     Dates: start: 20171219, end: 20171227
  3. ASCABIOL [Concomitant]
     Active Substance: BENZYL BENZOATE
     Route: 003
     Dates: start: 20171219, end: 20171219
  4. LOXAPAC [Concomitant]
     Active Substance: LOXAPINE
     Dosage: ROUTE: INTRAMUSCULAR
     Dates: start: 20171219, end: 20171219
  5. ZYPREXA [Suspect]
     Active Substance: OLANZAPINE
     Indication: PSYCHIATRIC DECOMPENSATION
     Route: 048
     Dates: start: 20171220, end: 20171227
  6. DEPAKINE [Suspect]
     Active Substance: VALPROATE SODIUM
     Indication: PSYCHIATRIC DECOMPENSATION
     Route: 048
     Dates: start: 20171220, end: 20171223
  7. VALIUM [Suspect]
     Active Substance: DIAZEPAM
     Indication: PSYCHIATRIC DECOMPENSATION
     Route: 048
     Dates: start: 20171219, end: 20171227
  8. IMODIUM [Concomitant]
     Active Substance: LOPERAMIDE HYDROCHLORIDE
     Route: 048
     Dates: start: 20171220, end: 20171220
  9. SPREGAL [Concomitant]
     Active Substance: PIPERONYL BUTOXIDE\S-BIOALLETHRIN
     Route: 003
     Dates: start: 20171219, end: 20171219
  10. THERALENE [Suspect]
     Active Substance: TRIMEPRAZINE
     Indication: PSYCHIATRIC DECOMPENSATION
     Route: 048
     Dates: start: 20171219, end: 20171227
  11. ABILIFY [Suspect]
     Active Substance: ARIPIPRAZOLE
     Indication: PSYCHIATRIC DECOMPENSATION
     Dosage: ROUTE: INTRAMUSCULAR
     Dates: start: 20171206, end: 20171206

REACTIONS (1)
  - Cardio-respiratory arrest [Fatal]

NARRATIVE: CASE EVENT DATE: 20171227
